FAERS Safety Report 10241233 (Version 1)
Quarter: 2014Q1

REPORT INFORMATION
  Report Type: Spontaneous
  Country: US (occurrence: None)
  Receive Date: 20140306
  Receipt Date: 20140306
  Transmission Date: 20141002
  Serious: Yes (Hospitalization)
  Sender: FDA-Public Use
  Company Number: 163-21880-13051254

PATIENT
  Age: 65 Year
  Sex: Female

DRUGS (3)
  1. REVLIMID (LENALIDOMIDE) (25 MILLIGRAM, CAPSULES) [Suspect]
     Indication: PLASMA CELL MYELOMA
     Dosage: 25MG, 1 IN 1D, PO
     Route: 048
     Dates: start: 200902
  2. IRON (IRON) [Concomitant]
  3. LEVAQUIN (LEVOFLOXACIN) [Concomitant]

REACTIONS (14)
  - Bacterial infection [None]
  - Pyrexia [None]
  - Oropharyngeal pain [None]
  - White blood cell count decreased [None]
  - Viral infection [None]
  - Upper respiratory tract infection [None]
  - Diarrhoea [None]
  - Pruritus [None]
  - Dyspnoea [None]
  - Neutrophil count decreased [None]
  - Nasopharyngitis [None]
  - Lactose intolerance [None]
  - Nasopharyngitis [None]
  - Full blood count decreased [None]
